FAERS Safety Report 14169005 (Version 2)
Quarter: 2018Q1

REPORT INFORMATION
  Report Type: Spontaneous
  Country: US (occurrence: US)
  Receive Date: 20171107
  Receipt Date: 20180105
  Transmission Date: 20180508
  Serious: Yes (Hospitalization)
  Sender: FDA-Public Use
  Company Number: US-TEVA-823958USA

PATIENT
  Sex: Male

DRUGS (5)
  1. AZILECT [Suspect]
     Active Substance: RASAGILINE MESYLATE
     Dosage: 1 MILLIGRAM DAILY;
     Route: 065
     Dates: start: 20171104
  2. AZILECT [Suspect]
     Active Substance: RASAGILINE MESYLATE
     Indication: PARKINSONISM
     Dosage: 1 MILLIGRAM DAILY;
     Route: 065
     Dates: end: 20171031
  3. MUCINEX [Concomitant]
     Active Substance: GUAIFENESIN
  4. FLONASE [Concomitant]
     Active Substance: FLUTICASONE PROPIONATE
  5. LORATADINE. [Concomitant]
     Active Substance: LORATADINE

REACTIONS (4)
  - Bronchitis [Unknown]
  - Blood pressure fluctuation [Unknown]
  - Adverse event [Unknown]
  - Sinusitis [Unknown]

NARRATIVE: CASE EVENT DATE: 20171102
